FAERS Safety Report 17817594 (Version 1)
Quarter: 2020Q2

REPORT INFORMATION
  Report Type: Spontaneous
  Country: US (occurrence: US)
  Receive Date: 20200522
  Receipt Date: 20200522
  Transmission Date: 20200714
  Serious: No
  Sender: FDA-Public Use
  Company Number: US-MAYNE PHARMA-2020MYN000117

PATIENT

DRUGS (3)
  1. NORTRIPTYLINE HYDROCHLORIDE. [Suspect]
     Active Substance: NORTRIPTYLINE HYDROCHLORIDE
     Indication: DEPRESSION
     Dosage: 35 MG, QD
     Route: 048
  2. NORTRIPTYLINE HYDROCHLORIDE. [Suspect]
     Active Substance: NORTRIPTYLINE HYDROCHLORIDE
     Dosage: 50 MG, QD
     Route: 048
  3. NORTRIPTYLINE HYDROCHLORIDE. [Suspect]
     Active Substance: NORTRIPTYLINE HYDROCHLORIDE
     Dosage: 40 MG, QD
     Route: 048

REACTIONS (5)
  - Therapeutic product effect decreased [Unknown]
  - Tinnitus [Unknown]
  - Depression [Unknown]
  - Feeling abnormal [Unknown]
  - Hysterectomy [Unknown]

NARRATIVE: CASE EVENT DATE: 2018
